FAERS Safety Report 6757027-4 (Version None)
Quarter: 2010Q2

REPORT INFORMATION
  Report Type: 
  Country: None (occurrence: None)
  Receive Date: 20100604
  Receipt Date: 20100525
  Transmission Date: 20101027
  Serious: Yes (Hospitalization)
  Sender: FDA-Public Use
  Company Number: AU-ELI_LILLY_AND_COMPANY-AU201004002217

PATIENT
  Age: 55 Year
  Sex: Female

DRUGS (7)
  1. CYMBALTA [Suspect]
     Indication: DEPRESSION
     Dosage: 30 MG, UNKNOWN
     Route: 065
  2. CYMBALTA [Suspect]
     Dosage: 60 MG, UNKNOWN
     Route: 065
     Dates: start: 20100311, end: 20100312
  3. LIPITOR [Concomitant]
     Indication: BLOOD CHOLESTEROL INCREASED
     Dosage: 20 MG, DAILY (1/D)
     Route: 065
  4. MICARDIS [Concomitant]
     Indication: HYPERTENSION
     Dosage: 80 MG, DAILY (1/D)
     Route: 065
  5. MINAX [Concomitant]
     Indication: GASTROOESOPHAGEAL REFLUX DISEASE
     Dosage: 50 MG, DAILY (1/D)
     Route: 065
  6. NEXIUM [Concomitant]
     Dosage: 20 MG, DAILY (1/D)
     Route: 065
  7. PANADOL [Concomitant]
     Indication: OSTEOARTHRITIS
     Dosage: UNK, AS NEEDED, THREE TIMES PER DAY
     Route: 065

REACTIONS (1)
  - VENTRICULAR EXTRASYSTOLES [None]
